FAERS Safety Report 10172769 (Version 2)
Quarter: 2014Q2

REPORT INFORMATION
  Report Type: Report from Study
  Country: US (occurrence: US)
  Receive Date: 20140515
  Receipt Date: 20140515
  Transmission Date: 20141212
  Serious: Yes (Other)
  Sender: FDA-Public Use
  Company Number: US-ROCHE-1343707

PATIENT
  Age: 77 Year
  Sex: Male
  Weight: 65.38 kg

DRUGS (1)
  1. ERIVEDGE [Suspect]
     Indication: BASAL CELL CARCINOMA
     Route: 048
     Dates: start: 20131220, end: 20140213

REACTIONS (4)
  - Nasopharyngitis [Recovered/Resolved]
  - Muscle spasms [Recovered/Resolved]
  - Alopecia [Recovering/Resolving]
  - Pain in extremity [Not Recovered/Not Resolved]
